FAERS Safety Report 23351764 (Version 1)
Quarter: 2023Q4

REPORT INFORMATION
  Report Type: Spontaneous
  Country: US (occurrence: None)
  Receive Date: 20231229
  Receipt Date: 20231229
  Transmission Date: 20240110
  Serious: Yes (Other)
  Sender: FDA-Public Use
  Company Number: None

PATIENT
  Sex: Male

DRUGS (14)
  1. ENBREL [Suspect]
     Active Substance: ETANERCEPT
  2. ELIQUIS [Concomitant]
     Active Substance: APIXABAN
  3. FOLIC ACID [Concomitant]
  4. LOSARTAN POT TAB 50MG [Concomitant]
  5. METHOTREXATE INJ [Concomitant]
  6. METOPROL SUC TAB 25MG ER [Concomitant]
  7. METOPROL SUC TAB 50MG ER [Concomitant]
  8. MONTELUKAST TAB 10MG [Concomitant]
  9. ORPHENADRINE TAB 100MG ER [Concomitant]
  10. TAMSULOSIN CAP 0.4MG [Concomitant]
  11. TRAMADOL HCL TAB 50MG [Concomitant]
  12. TRAZODONE TAB 50MG [Concomitant]
  13. VITAMIN D CAP 2000UNIT [Concomitant]
  14. VOLTAREN [Concomitant]
     Active Substance: DICLOFENAC SODIUM

REACTIONS (1)
  - Cardiac operation [None]
